FAERS Safety Report 9305263 (Version 1)
Quarter: 2013Q2

REPORT INFORMATION
  Report Type: Spontaneous
  Country: US (occurrence: None)
  Receive Date: 20130522
  Receipt Date: 20130522
  Transmission Date: 20140414
  Serious: Yes (Hospitalization)
  Sender: FDA-Public Use
  Company Number: None

PATIENT
  Age: 69 Year
  Sex: Male
  Weight: 91.3 kg

DRUGS (1)
  1. PIPERACILLIN/TAZOBACTAM [Suspect]
     Indication: CELLULITIS
     Route: 042
     Dates: start: 20130216, end: 20130223

REACTIONS (2)
  - Tubulointerstitial nephritis [None]
  - Renal failure acute [None]
